FAERS Safety Report 7316687-X (Version None)
Quarter: 2011Q1

REPORT INFORMATION
  Report Type: 
  Country: None (occurrence: None)
  Receive Date: 20110226
  Receipt Date: 20100728
  Transmission Date: 20110831
  Serious: No
  Sender: FDA-Public Use
  Company Number: US-ALLERGAN-1009818US

PATIENT
  Age: 53 Year
  Sex: Female

DRUGS (5)
  1. BOTOX COSMETIC [Suspect]
     Indication: SKIN WRINKLING
     Dosage: 6 UNITS, SINGLE
     Route: 030
     Dates: start: 20100728, end: 20100728
  2. BOTOX COSMETIC [Suspect]
     Dosage: 13 UNITS, SINGLE
     Route: 030
     Dates: start: 20100728, end: 20100728
  3. BOTOX COSMETIC [Suspect]
     Dosage: 15 UNITS, SINGLE
     Route: 030
     Dates: start: 20100521, end: 20100521
  4. BOTOX COSMETIC [Suspect]
     Dosage: 19 UNITS, SINGLE
     Route: 030
     Dates: start: 20100317, end: 20100317
  5. BOTOX COSMETIC [Suspect]
     Dosage: 44 UNITS, SINGLE
     Route: 030
     Dates: start: 20090602, end: 20090602

REACTIONS (3)
  - BURNING SENSATION [None]
  - HEADACHE [None]
  - INJECTION SITE PAIN [None]
